FAERS Safety Report 24225864 (Version 1)
Quarter: 2024Q3

REPORT INFORMATION
  Report Type: Spontaneous
  Country: ZA (occurrence: None)
  Receive Date: 20240820
  Receipt Date: 20240820
  Transmission Date: 20241017
  Serious: Yes (Other)
  Sender: ASTRAZENECA
  Company Number: 2024A184028

PATIENT
  Age: 86 Year
  Sex: Female

DRUGS (9)
  1. DAPAGLIFLOZIN PROPANEDIOL [Suspect]
     Active Substance: DAPAGLIFLOZIN PROPANEDIOL
     Route: 048
  2. SPIRACTIN [Concomitant]
  3. ECOTRIN [Concomitant]
     Active Substance: ASPIRIN
  4. CARBILEV [Concomitant]
     Active Substance: CARBIDOPA\LEVODOPA
  5. CARVEDILOL [Concomitant]
     Active Substance: CARVEDILOL
  6. PRADAXA [Concomitant]
     Active Substance: DABIGATRAN ETEXILATE MESYLATE
  7. ROSUVASTATIN [Concomitant]
     Active Substance: ROSUVASTATIN\ROSUVASTATIN CALCIUM
  8. ESOMEPRAZOLE [Concomitant]
     Active Substance: ESOMEPRAZOLE
  9. URTON [Concomitant]
     Dosage: 50 MG

REACTIONS (4)
  - Cardiac failure [Unknown]
  - Bladder disorder [Unknown]
  - Productive cough [Unknown]
  - Illness [Unknown]
